FAERS Safety Report 17016590 (Version 2)
Quarter: 2020Q3

REPORT INFORMATION
  Report Type: Spontaneous
  Country: US (occurrence: US)
  Receive Date: 20191111
  Receipt Date: 20200901
  Transmission Date: 20201102
  Serious: No
  Sender: FDA-Public Use
  Company Number: US-PFIZER INC-2018527692

PATIENT
  Age: 49 Year
  Sex: Female
  Weight: 111 kg

DRUGS (4)
  1. LYRICA [Suspect]
     Active Substance: PREGABALIN
     Indication: INTERVERTEBRAL DISC DISORDER
     Dosage: 75 MG, 2X/DAY (1 AT AM AND 1 AT PM)
  2. LYRICA [Suspect]
     Active Substance: PREGABALIN
     Indication: RADICULOPATHY
  3. LYRICA [Suspect]
     Active Substance: PREGABALIN
     Indication: FIBROMYALGIA
  4. LYRICA [Suspect]
     Active Substance: PREGABALIN
     Indication: BACK DISORDER
     Dosage: 75 MG, 4X/DAY(1 TABLET PER ORAL FOUR TIMES A DAY)
     Route: 048
     Dates: start: 2013

REACTIONS (2)
  - Memory impairment [Unknown]
  - Intentional product use issue [Unknown]
